FAERS Safety Report 10309855 (Version 1)
Quarter: 2014Q3

REPORT INFORMATION
  Report Type: Spontaneous
  Country: US (occurrence: US)
  Receive Date: 20140717
  Receipt Date: 20140717
  Transmission Date: 20150326
  Serious: Yes (Other)
  Sender: FDA-Public Use
  Company Number: US-BRISTOL-MYERS SQUIBB COMPANY-21181433

PATIENT
  Age: 53 Year
  Sex: Female

DRUGS (1)
  1. ORENCIA [Suspect]
     Active Substance: ABATACEPT
     Route: 042
     Dates: start: 201312

REACTIONS (1)
  - Hepatitis C [Unknown]

NARRATIVE: CASE EVENT DATE: 2014
